FAERS Safety Report 16666761 (Version 1)
Quarter: 2019Q3

REPORT INFORMATION
  Report Type: Spontaneous
  Country: US (occurrence: US)
  Receive Date: 20190805
  Receipt Date: 20190805
  Transmission Date: 20191004
  Serious: Yes (Other)
  Sender: FDA-Public Use
  Company Number: US-ACCORD-107850

PATIENT
  Age: 66 Year
  Sex: Female

DRUGS (6)
  1. DOCETAXEL ACCORD [Suspect]
     Active Substance: DOCETAXEL
     Indication: BREAST CANCER
     Dates: start: 20130827, end: 20131210
  2. LEVOTHYROXINE. [Concomitant]
     Active Substance: LEVOTHYROXINE
     Dates: start: 1970
  3. CYTOXAN [Suspect]
     Active Substance: CYCLOPHOSPHAMIDE
     Indication: BREAST CANCER
     Dates: start: 20130827, end: 20131210
  4. HYDROCHLOROTHIAZIDE/IRBESARTAN [Concomitant]
     Dates: start: 2000
  5. ANASTROZOLE. [Concomitant]
     Active Substance: ANASTROZOLE
     Dates: start: 2014
  6. TAMOXIFEN [Concomitant]
     Active Substance: TAMOXIFEN
     Dates: start: 2014

REACTIONS (1)
  - Alopecia [Not Recovered/Not Resolved]

NARRATIVE: CASE EVENT DATE: 201312
